FAERS Safety Report 8879068 (Version 1)
Quarter: 2012Q4

REPORT INFORMATION
  Report Type: Spontaneous
  Country: US (occurrence: None)
  Receive Date: 20121031
  Receipt Date: 20121031
  Transmission Date: 20130627
  Serious: Yes (Other)
  Sender: FDA-Public Use
  Company Number: None

PATIENT

DRUGS (2)
  1. BUPROPION [Suspect]
     Indication: DEPRESSION
     Dosage: 1 pill 1x per day
     Dates: start: 20100125, end: 20100225
  2. BUPROPION [Suspect]
     Indication: DEPRESSION
     Dosage: 1 pill 2x per day
     Dates: start: 20110705, end: 20110717

REACTIONS (4)
  - Product substitution issue [None]
  - Muscle spasms [None]
  - Dizziness [None]
  - Panic attack [None]
